FAERS Safety Report 22308230 (Version 1)
Quarter: 2023Q2

REPORT INFORMATION
  Report Type: Spontaneous
  Country: US (occurrence: None)
  Receive Date: 20230511
  Receipt Date: 20230511
  Transmission Date: 20230721
  Serious: No
  Sender: FDA-Public Use
  Company Number: US-ROCHE-3205423

PATIENT
  Sex: Female
  Weight: 72.6 kg

DRUGS (18)
  1. OCREVUS [Suspect]
     Active Substance: OCRELIZUMAB
     Indication: Relapsing-remitting multiple sclerosis
     Route: 042
     Dates: start: 201910
  2. ENTOCORT [Concomitant]
     Active Substance: BUDESONIDE
  3. ZYRTEC [Concomitant]
     Active Substance: CETIRIZINE HYDROCHLORIDE
  4. WELCHOL [Concomitant]
     Active Substance: COLESEVELAM HYDROCHLORIDE
  5. VOLTAREN [Concomitant]
     Active Substance: DICLOFENAC SODIUM
  6. PEPCID [Concomitant]
     Active Substance: FAMOTIDINE
  7. IBUPROFEN [Concomitant]
     Active Substance: IBUPROFEN
  8. PREVACID [Concomitant]
     Active Substance: LANSOPRAZOLE
  9. LISINOPRIL [Concomitant]
     Active Substance: LISINOPRIL
  10. MELATONIN [Concomitant]
     Active Substance: MELATONIN
  11. ROBAXIN [Concomitant]
     Active Substance: METHOCARBAMOL
  12. LOPRESSOR [Concomitant]
     Active Substance: METOPROLOL TARTRATE
  13. FLAGYL [Concomitant]
     Active Substance: METRONIDAZOLE\METRONIDAZOLE HYDROCHLORIDE
  14. SINGULAIR [Concomitant]
     Active Substance: MONTELUKAST SODIUM
  15. LYRICA [Concomitant]
     Active Substance: PREGABALIN
  16. EVENITY [Concomitant]
     Active Substance: ROMOSOZUMAB-AQQG
  17. IMITREX [Concomitant]
     Active Substance: SUMATRIPTAN SUCCINATE
  18. LAMISIL [Concomitant]
     Active Substance: TERBINAFINE HYDROCHLORIDE

REACTIONS (1)
  - Colitis [Recovering/Resolving]

NARRATIVE: CASE EVENT DATE: 20220501
